FAERS Safety Report 9898984 (Version 2)
Quarter: 2014Q1

REPORT INFORMATION
  Report Type: Spontaneous
  Country: FR (occurrence: FR)
  Receive Date: 20140214
  Receipt Date: 20140227
  Transmission Date: 20141002
  Serious: Yes (Hospitalization)
  Sender: FDA-Public Use
  Company Number: FR-GLAXOSMITHKLINE-B0967193A

PATIENT
  Age: 75 Year
  Sex: Female

DRUGS (14)
  1. ZELITREX [Suspect]
     Indication: OPHTHALMIC HERPES SIMPLEX
     Route: 048
     Dates: start: 20130927, end: 20130929
  2. IXPRIM [Concomitant]
     Indication: PRODUCT USED FOR UNKNOWN INDICATION
     Route: 048
     Dates: start: 20130927
  3. ATROPINE [Concomitant]
     Dosage: 1DROP TWICE PER DAY
     Route: 047
     Dates: start: 20130927
  4. RIFAMYCINE CHIBRET [Concomitant]
     Dosage: 1APP THREE TIMES PER DAY
     Route: 047
     Dates: start: 20130927
  5. CILOXAN [Concomitant]
     Route: 047
  6. VITAMIN A [Concomitant]
     Route: 047
     Dates: start: 20130927
  7. VENTOLINE [Concomitant]
     Dosage: 200MCG THREE TIMES PER DAY
     Route: 055
  8. CACIT D3 [Concomitant]
     Dosage: 2UNIT PER DAY
  9. ATORVASTATINE [Concomitant]
     Dosage: 20MG PER DAY
  10. MONOTILDIEM [Concomitant]
  11. INEXIUM [Concomitant]
     Dosage: 40MG PER DAY
  12. KAYEXALATE [Concomitant]
  13. NITRIDERM [Concomitant]
     Dosage: 10MG PER DAY
  14. UVEDOSE [Concomitant]

REACTIONS (4)
  - Abnormal behaviour [Recovered/Resolved]
  - Hallucination, visual [Recovered/Resolved]
  - Confusional state [Recovered/Resolved]
  - Overdose [Unknown]
